FAERS Safety Report 18206283 (Version 5)
Quarter: 2021Q1

REPORT INFORMATION
  Report Type: Report from Study
  Country: US (occurrence: US)
  Receive Date: 20200828
  Receipt Date: 20210329
  Transmission Date: 20210419
  Serious: No
  Sender: FDA-Public Use
  Company Number: US-BIOVITRUM-2020US4602

PATIENT
  Sex: Female

DRUGS (2)
  1. KINERET [Suspect]
     Active Substance: ANAKINRA
     Route: 058
     Dates: start: 20190815
  2. KINERET [Suspect]
     Active Substance: ANAKINRA
     Indication: RHEUMATOID ARTHRITIS
     Route: 058
     Dates: start: 20190816

REACTIONS (9)
  - Sinusitis [Unknown]
  - Infection [Unknown]
  - Fatigue [Unknown]
  - Neck mass [Unknown]
  - Dysphagia [Unknown]
  - Thyroid disorder [Not Recovered/Not Resolved]
  - Dehydration [Unknown]
  - Abnormal loss of weight [Unknown]
  - Product dose omission issue [Unknown]
